FAERS Safety Report 9227268 (Version 3)
Quarter: 2013Q2

REPORT INFORMATION
  Report Type: Spontaneous
  Country: US (occurrence: US)
  Receive Date: 20130412
  Receipt Date: 20130508
  Transmission Date: 20140414
  Serious: Yes (Hospitalization, Disabling)
  Sender: FDA-Public Use
  Company Number: PHEH2013US007791

PATIENT
  Age: 45 Year
  Sex: Female
  Weight: 63.39 kg

DRUGS (4)
  1. GILENYA [Suspect]
     Indication: MULTIPLE SCLEROSIS
     Dosage: 0.5 MG, QD
     Route: 048
     Dates: start: 201111, end: 201211
  2. GILENYA [Suspect]
     Dosage: 0.5 MG, QD
     Route: 048
     Dates: start: 201304
  3. CELEXA [Concomitant]
     Indication: DEPRESSION
     Dosage: 20 MG, QD
     Route: 048
     Dates: start: 201301
  4. VESICARE [Concomitant]
     Indication: NEUROGENIC BLADDER
     Route: 048
     Dates: start: 201302

REACTIONS (8)
  - Multiple sclerosis relapse [Unknown]
  - Central nervous system lesion [Unknown]
  - Muscle spasticity [Unknown]
  - Dementia [Unknown]
  - Paraparesis [Unknown]
  - Cognitive disorder [Unknown]
  - Gait disturbance [Unknown]
  - Multiple sclerosis [Recovering/Resolving]
